FAERS Safety Report 7047938-7 (Version None)
Quarter: 2010Q4

REPORT INFORMATION
  Report Type: 
  Country: None (occurrence: None)
  Receive Date: 20101014
  Receipt Date: 20101014
  Transmission Date: 20110411
  Serious: Yes (Hospitalization)
  Sender: FDA-Public Use
  Company Number: None

PATIENT
  Weight: 64.8644 kg

DRUGS (3)
  1. CISPLATIN [Suspect]
     Indication: BREAST CANCER
     Dosage: 20MG/M2 WEEKLY
     Dates: start: 20100716
  2. TAXOL [Suspect]
     Dosage: 70MG/M2 WEEKLY
     Dates: start: 20100716
  3. RAD001 [Suspect]
     Indication: BREAST CANCER
     Dosage: 5MG DAILY
     Dates: start: 20100716

REACTIONS (3)
  - DRUG TOXICITY [None]
  - FEBRILE NEUTROPENIA [None]
  - PLATELET COUNT DECREASED [None]
